FAERS Safety Report 4653539-8 (Version None)
Quarter: 2005Q2

REPORT INFORMATION
  Report Type: 
  Country: None (occurrence: None)
  Receive Date: 20050404
  Receipt Date: 20050208
  Transmission Date: 20051028
  Serious: No
  Sender: FDA-Public Use
  Company Number: USA050188468

PATIENT
  Age: 88 Year
  Sex: Female
  Weight: 55 kg

DRUGS (6)
  1. CYMBALTA [Suspect]
     Indication: MAJOR DEPRESSION
     Dosage: 30 MG/1 DAY
     Dates: start: 20041201, end: 20041209
  2. ALTACE (RAMIPRIL DURA) [Concomitant]
  3. EVISTA [Concomitant]
  4. CITRACAL + D [Concomitant]
  5. DITROPAN XL [Concomitant]
  6. AVAPRO [Concomitant]

REACTIONS (1)
  - FACIAL PALSY [None]
